FAERS Safety Report 7013127-5 (Version None)
Quarter: 2010Q3

REPORT INFORMATION
  Report Type: 
  Country: None (occurrence: None)
  Receive Date: 20100924
  Receipt Date: 20100921
  Transmission Date: 20110219
  Serious: Yes (Life-Threatening, Hospitalization, Other)
  Sender: FDA-Public Use
  Company Number: US-JNJFOC-20100907082

PATIENT
  Sex: Male
  Weight: 54.43 kg

DRUGS (1)
  1. CONCERTA [Suspect]
     Indication: ATTENTION DEFICIT/HYPERACTIVITY DISORDER
     Route: 048

REACTIONS (5)
  - DEVICE MALFUNCTION [None]
  - GROWTH RETARDATION [None]
  - HEART RATE INCREASED [None]
  - MENTAL RETARDATION [None]
  - MYOCARDIAL INFARCTION [None]
